FAERS Safety Report 13997926 (Version 1)
Quarter: 2017Q3

REPORT INFORMATION
  Report Type: Spontaneous
  Country: US (occurrence: US)
  Receive Date: 20170921
  Receipt Date: 20170921
  Transmission Date: 20171128
  Serious: Yes (Hospitalization)
  Sender: FDA-Public Use
  Company Number: None

PATIENT
  Age: 73 Year
  Sex: Female
  Weight: 76.5 kg

DRUGS (4)
  1. ELIQUIS [Suspect]
     Active Substance: APIXABAN
     Indication: PRODUCT USED FOR UNKNOWN INDICATION
     Dosage: ?          QUANTITY:2 TABLET(S);?
     Route: 048
     Dates: start: 20160920, end: 20170921
  2. TUMS [Concomitant]
     Active Substance: CALCIUM CARBONATE
  3. TYLENOL [Concomitant]
     Active Substance: ACETAMINOPHEN
  4. METFORMIN [Concomitant]
     Active Substance: METFORMIN HYDROCHLORIDE

REACTIONS (16)
  - Influenza like illness [None]
  - Proctalgia [None]
  - Anxiety [None]
  - Panic disorder [None]
  - Back pain [None]
  - Neck pain [None]
  - Musculoskeletal stiffness [None]
  - Dizziness postural [None]
  - Throat tightness [None]
  - Dysphagia [None]
  - Toothache [None]
  - Heart rate increased [None]
  - Chest pain [None]
  - Pain in jaw [None]
  - Tinnitus [None]
  - Fatigue [None]
